FAERS Safety Report 4653715-4 (Version None)
Quarter: 2005Q2

REPORT INFORMATION
  Report Type: 
  Country: None (occurrence: None)
  Receive Date: 20050505
  Receipt Date: 20040610
  Transmission Date: 20051028
  Serious: Yes (Other)
  Sender: FDA-Public Use
  Company Number: GB-ABBOTT-04P-167-0263840-00

PATIENT
  Sex: Female
  Weight: 69 kg

DRUGS (5)
  1. HUMIRA [Suspect]
     Indication: RHEUMATOID ARTHRITIS
     Route: 058
     Dates: start: 20031013
  2. METHOTREXATE SODIUM [Concomitant]
     Indication: RHEUMATOID ARTHRITIS
     Route: 048
     Dates: start: 20000101, end: 20040515
  3. ROFECOXIB [Concomitant]
     Indication: RHEUMATOID ARTHRITIS
     Route: 048
     Dates: start: 20000101
  4. ACETAMINOPHEN W/ PROPOXYPHENE HCL [Concomitant]
     Indication: RHEUMATOID ARTHRITIS
     Dosage: 1-2 TABLETS
     Route: 048
     Dates: start: 20000101
  5. OMEPRAZOLE [Concomitant]
     Indication: RHEUMATOID ARTHRITIS
     Route: 048
     Dates: start: 20000101

REACTIONS (1)
  - ABORTION SPONTANEOUS [None]
